FAERS Safety Report 7909440-7 (Version None)
Quarter: 2011Q4

REPORT INFORMATION
  Report Type: 
  Country: None (occurrence: None)
  Receive Date: 20111111
  Receipt Date: 20111029
  Transmission Date: 20120403
  Serious: Yes (Other)
  Sender: FDA-Public Use
  Company Number: JP-ELI_LILLY_AND_COMPANY-JP201106003224

PATIENT
  Age: 82 Year
  Sex: Female

DRUGS (1)
  1. FORTEO [Suspect]
     Dosage: UNK
     Route: 058
     Dates: start: 20110603

REACTIONS (10)
  - HEAT RASH [None]
  - ASTHENIA [None]
  - HAEMATURIA [None]
  - HEADACHE [None]
  - EXPIRED DRUG ADMINISTERED [None]
  - FOOT DEFORMITY [None]
  - DRUG DOSE OMISSION [None]
  - INJECTION SITE HAEMATOMA [None]
  - BACK PAIN [None]
  - PALPITATIONS [None]
